FAERS Safety Report 9010744 (Version 1)
Quarter: 2013Q1

REPORT INFORMATION
  Report Type: Spontaneous
  Country: US (occurrence: US)
  Receive Date: 20130111
  Receipt Date: 20130111
  Transmission Date: 20140127
  Serious: Yes (Hospitalization)
  Sender: FDA-Public Use
  Company Number: PHEH2013US000665

PATIENT
  Sex: Female

DRUGS (3)
  1. SANDOSTATIN LAR DEPOT [Suspect]
     Indication: CARCINOID SYNDROME
     Dosage: UNK UKN, UNK
  2. CARBOPLATIN [Concomitant]
     Dosage: UNK UKN, UNK
  3. CISPLATIN [Concomitant]
     Dosage: UNK UKN, UNK

REACTIONS (11)
  - Ecchymosis [Unknown]
  - Deafness [Unknown]
  - Malaise [Unknown]
  - Anxiety [Unknown]
  - Jaundice cholestatic [Recovering/Resolving]
  - Blood bilirubin increased [Unknown]
  - Pruritus [Recovering/Resolving]
  - Nausea [Unknown]
  - Back pain [Unknown]
  - Constipation [Unknown]
  - Abdominal pain upper [Unknown]
